FAERS Safety Report 5890836-2 (Version None)
Quarter: 2008Q3

REPORT INFORMATION
  Report Type: 
  Country: None (occurrence: None)
  Receive Date: 20080922
  Receipt Date: 20080912
  Transmission Date: 20090109
  Serious: Yes (Other)
  Sender: FDA-Public Use
  Company Number: US-BAXTER-2008BH006292

PATIENT
  Age: 73 Year
  Sex: Male
  Weight: 105 kg

DRUGS (1)
  1. VANCOMYCIN HCL [Suspect]
     Indication: ANTIBIOTIC PROPHYLAXIS
     Dosage: DOSE UNIT:UNKNOWN
     Route: 042
     Dates: start: 20080610, end: 20080610

REACTIONS (3)
  - HYPOTENSION [None]
  - OXYGEN SATURATION DECREASED [None]
  - URTICARIA [None]
